FAERS Safety Report 6641694-X (Version None)
Quarter: 2010Q1

REPORT INFORMATION
  Report Type: 
  Country: None (occurrence: None)
  Receive Date: 20100319
  Receipt Date: 20100309
  Transmission Date: 20100710
  Serious: Yes (Hospitalization)
  Sender: FDA-Public Use
  Company Number: US-BIOGENIDEC-2009BI020876

PATIENT
  Age: 63 Year
  Sex: Female

DRUGS (8)
  1. TYSABRI [Suspect]
     Indication: MULTIPLE SCLEROSIS
     Route: 042
     Dates: start: 20070503, end: 20091120
  2. TYSABRI [Suspect]
     Route: 042
  3. BACLOFEN [Concomitant]
     Route: 048
  4. HYDROCHLOROTHIAZIDE [Concomitant]
  5. TRIAMTERENE [Concomitant]
  6. LYRICA [Concomitant]
     Route: 048
  7. MIRALAX [Concomitant]
  8. ECOTRIN [Concomitant]

REACTIONS (12)
  - APHASIA [None]
  - CARPAL TUNNEL SYNDROME [None]
  - CONSTIPATION [None]
  - FALL [None]
  - HEMIPARESIS [None]
  - JOINT HYPEREXTENSION [None]
  - KNEE DEFORMITY [None]
  - MULTIPLE SCLEROSIS [None]
  - MUSCULAR WEAKNESS [None]
  - PERONEAL NERVE PALSY [None]
  - UTERINE LEIOMYOMA [None]
  - WEIGHT DECREASED [None]
